FAERS Safety Report 7688595-6 (Version None)
Quarter: 2011Q3

REPORT INFORMATION
  Report Type: 
  Country: None (occurrence: None)
  Receive Date: 20110817
  Receipt Date: 20110803
  Transmission Date: 20111222
  Serious: No
  Sender: FDA-Public Use
  Company Number: US-BAYER-2011-070173

PATIENT
  Age: 54 Year
  Sex: Male

DRUGS (8)
  1. CLONIDINE [Concomitant]
  2. NEXAVAR [Suspect]
     Dosage: 200 MG, QD
     Dates: start: 20110601
  3. TRAZODONE HCL [Concomitant]
  4. SORBITOL [SORBITOL] [Concomitant]
  5. LANTUS [Concomitant]
  6. PROMETHAZINE [Concomitant]
     Dosage: UNK
  7. LORAZEPAM [Concomitant]
     Dosage: UNK
  8. LISINOPRIL [Concomitant]

REACTIONS (4)
  - FATIGUE [None]
  - PLICATED TONGUE [None]
  - NAUSEA [None]
  - ALOPECIA [None]
